FAERS Safety Report 17482641 (Version 1)
Quarter: 2020Q1

REPORT INFORMATION
  Report Type: Spontaneous
  Country: US (occurrence: US)
  Receive Date: 20200218
  Receipt Date: 20200218
  Transmission Date: 20200409
  Serious: Yes (Life-Threatening, Disabling, Other)
  Sender: FDA-Public Use
  Company Number: None

PATIENT
  Age: 66 Year
  Sex: Female
  Weight: 76.2 kg

DRUGS (1)
  1. PREMARIN [Suspect]
     Active Substance: ESTROGENS, CONJUGATED
     Indication: MOOD SWINGS
     Dosage: ?          OTHER FREQUENCY:14 OF TABLET DAILY;?
     Route: 048
     Dates: start: 20180815

REACTIONS (2)
  - Product dispensing error [None]
  - Breast cancer [None]

NARRATIVE: CASE EVENT DATE: 20180924
